FAERS Safety Report 18462482 (Version 1)
Quarter: 2020Q4

REPORT INFORMATION
  Report Type: Spontaneous
  Country: US (occurrence: US)
  Receive Date: 20201103
  Receipt Date: 20201103
  Transmission Date: 20210114
  Serious: No
  Sender: FDA-Public Use
  Company Number: None

PATIENT
  Age: 40 Year
  Sex: Female
  Weight: 74.25 kg

DRUGS (7)
  1. CHLORHEXIDINE [Suspect]
     Active Substance: CHLORHEXIDINE
     Indication: INFECTION PROPHYLAXIS
     Route: 061
  2. MULTI VITAMIN [Concomitant]
     Active Substance: VITAMINS
  3. IRON [Concomitant]
     Active Substance: IRON
  4. CALCIUM CITRATE [Concomitant]
     Active Substance: CALCIUM CITRATE
  5. NORTREL [Concomitant]
     Active Substance: ETHINYL ESTRADIOL\NORETHINDRONE
  6. LEVOTHYROX [Concomitant]
     Active Substance: LEVOTHYROXINE
  7. MAGNESIUM [Concomitant]
     Active Substance: MAGNESIUM

REACTIONS (4)
  - Rash pruritic [None]
  - Application site rash [None]
  - Rash papular [None]
  - Drug hypersensitivity [None]

NARRATIVE: CASE EVENT DATE: 20201027
